FAERS Safety Report 19519948 (Version 1)
Quarter: 2021Q3

REPORT INFORMATION
  Report Type: Other
  Country: ES (occurrence: ES)
  Receive Date: 20210712
  Receipt Date: 20210712
  Transmission Date: 20211014
  Serious: Yes (Other)
  Sender: FDA-Public Use
  Company Number: ES-ROCHE-2865802

PATIENT
  Age: 69 Year
  Sex: Male

DRUGS (1)
  1. ATEZOLIZUMAB. [Suspect]
     Active Substance: ATEZOLIZUMAB
     Indication: TRANSITIONAL CELL CARCINOMA
     Route: 041

REACTIONS (5)
  - Diarrhoea [Recovered/Resolved]
  - Urinary tract infection [Recovered/Resolved]
  - Diabetes mellitus [Unknown]
  - Pruritus [Recovered/Resolved]
  - Pneumonitis [Recovered/Resolved]

NARRATIVE: CASE EVENT DATE: 20171110
